FAERS Safety Report 15900071 (Version 1)
Quarter: 2019Q1

REPORT INFORMATION
  Report Type: Spontaneous
  Country: TH (occurrence: TH)
  Receive Date: 20190201
  Receipt Date: 20190201
  Transmission Date: 20190417
  Serious: Yes (Death, Other)
  Sender: FDA-Public Use
  Company Number: TH-ASTRAZENECA-2019SE18888

PATIENT
  Sex: Male

DRUGS (1)
  1. TAGRISSO [Suspect]
     Active Substance: OSIMERTINIB
     Dosage: UNKNOWN DOSE EVERY DAY
     Route: 048
     Dates: start: 20181114, end: 20190122

REACTIONS (2)
  - Lung infection [Unknown]
  - Lung neoplasm malignant [Fatal]
